FAERS Safety Report 9948118 (Version 2)
Quarter: 2014Q2

REPORT INFORMATION
  Report Type: Spontaneous
  Country: US (occurrence: None)
  Receive Date: 20140122
  Receipt Date: 20140425
  Transmission Date: 20141212
  Serious: Yes (Other)
  Sender: FDA-Public Use
  Company Number: AP356-00303-SPO-US

PATIENT
  Age: 51 Year
  Sex: Male
  Weight: 97.5 kg

DRUGS (3)
  1. BELVIQ [Suspect]
     Indication: OBESITY
     Route: 048
     Dates: start: 201311, end: 20131127
  2. LANTUS (INSULIN GLARGINE) [Concomitant]
  3. HUMULIN R (INSULIN HUMAN) [Concomitant]

REACTIONS (2)
  - Myalgia [None]
  - Pain in extremity [None]
